FAERS Safety Report 6569283-6 (Version None)
Quarter: 2010Q1

REPORT INFORMATION
  Report Type: 
  Country: None (occurrence: None)
  Receive Date: 20100201
  Receipt Date: 20100201
  Transmission Date: 20100710
  Serious: Yes (Other)
  Sender: FDA-Public Use
  Company Number: None

PATIENT
  Sex: Female

DRUGS (1)
  1. LEVAQUIN [Suspect]
     Indication: PNEUMONIA
     Dosage: 750 MG X1 DOSE PO
     Route: 048
     Dates: start: 20091228

REACTIONS (6)
  - ASTHENIA [None]
  - BREAST PAIN [None]
  - FLUID INTAKE REDUCED [None]
  - GAIT DISTURBANCE [None]
  - HYPOPHAGIA [None]
  - PAIN IN EXTREMITY [None]
